FAERS Safety Report 25744198 (Version 4)
Quarter: 2025Q4

REPORT INFORMATION
  Report Type: Report from Study
  Country: US (occurrence: US)
  Receive Date: 20250901
  Receipt Date: 20251019
  Transmission Date: 20260117
  Serious: Yes (Other)
  Sender: ABBVIE
  Company Number: US-ABBVIE-6437149

PATIENT
  Age: 58 Year
  Sex: Male
  Weight: 68.945 kg

DRUGS (1)
  1. RINVOQ [Suspect]
     Active Substance: UPADACITINIB
     Indication: Colitis ulcerative
     Dosage: FORM STRENGTH:15 MILLIGRAM
     Route: 048
     Dates: start: 2024

REACTIONS (7)
  - Meniscus injury [Unknown]
  - Arthralgia [Unknown]
  - Joint dislocation [Unknown]
  - Colitis ulcerative [Unknown]
  - Frustration tolerance decreased [Unknown]
  - Fall [Recovered/Resolved]
  - Eczema [Recovered/Resolved]

NARRATIVE: CASE EVENT DATE: 20250101
